FAERS Safety Report 20439080 (Version 7)
Quarter: 2022Q3

REPORT INFORMATION
  Report Type: Report from Study
  Country: US (occurrence: US)
  Receive Date: 20220207
  Receipt Date: 20220908
  Transmission Date: 20221026
  Serious: No
  Sender: FDA-Public Use
  Company Number: US-NOVARTISTESTPH-NVSC2022US026410

PATIENT
  Sex: Female

DRUGS (2)
  1. ENTRESTO [Suspect]
     Active Substance: SACUBITRIL\VALSARTAN
     Indication: Product used for unknown indication
     Dosage: 1 DOSAGE FORM, BID
     Route: 048
  2. ENTRESTO [Suspect]
     Active Substance: SACUBITRIL\VALSARTAN
     Dosage: UNK UNK, BID
     Route: 048

REACTIONS (12)
  - Dizziness [Unknown]
  - Dizziness [Recovered/Resolved]
  - Dry mouth [Unknown]
  - Dry skin [Unknown]
  - Pollakiuria [Unknown]
  - Chest discomfort [Recovering/Resolving]
  - Dyspnoea [Unknown]
  - Cough [Unknown]
  - Hypersensitivity [Unknown]
  - Secretion discharge [Unknown]
  - Asthma [Unknown]
  - Product dose omission issue [Unknown]
